FAERS Safety Report 22192302 (Version 1)
Quarter: 2023Q2

REPORT INFORMATION
  Report Type: Spontaneous
  Country: US (occurrence: None)
  Receive Date: 20230409
  Receipt Date: 20230409
  Transmission Date: 20230722
  Serious: Yes (Disabling, Other)
  Sender: FDA-Public Use
  Company Number: None

PATIENT
  Age: 26 Year
  Sex: Female
  Weight: 54 kg

DRUGS (1)
  1. DEXTROAMPHETAMINE [Suspect]
     Active Substance: DEXTROAMPHETAMINE
     Indication: Attention deficit hyperactivity disorder
     Dosage: OTHER QUANTITY : 1 CAPSULE(S);?FREQUENCY : AS NEEDED;?
     Route: 048

REACTIONS (7)
  - Migraine [None]
  - Panic attack [None]
  - Anxiety [None]
  - Agitation [None]
  - Irritability [None]
  - Depression [None]
  - Product quality issue [None]

NARRATIVE: CASE EVENT DATE: 20230322
